FAERS Safety Report 19357634 (Version 1)
Quarter: 2021Q2

REPORT INFORMATION
  Report Type: Spontaneous
  Country: JP (occurrence: JP)
  Receive Date: 20210601
  Receipt Date: 20210601
  Transmission Date: 20210717
  Serious: Yes (Other)
  Sender: FDA-Public Use
  Company Number: NVSJ2021JP007754

PATIENT
  Sex: Male

DRUGS (3)
  1. VALSARTAN TAB [Suspect]
     Active Substance: VALSARTAN
     Dosage: 40 MG
     Route: 048
  2. VALSARTAN TAB [Suspect]
     Active Substance: VALSARTAN
     Indication: PRODUCT USED FOR UNKNOWN INDICATION
     Dosage: 80 MG
     Route: 048
  3. VALSARTAN TAB [Suspect]
     Active Substance: VALSARTAN
     Dosage: 80 MG
     Route: 048

REACTIONS (2)
  - Intercepted product prescribing error [Unknown]
  - Blood pressure increased [Unknown]

NARRATIVE: CASE EVENT DATE: 202012
